FAERS Safety Report 6291407-9 (Version None)
Quarter: 2009Q3

REPORT INFORMATION
  Report Type: 
  Country: None (occurrence: None)
  Receive Date: 20090730
  Receipt Date: 20090722
  Transmission Date: 20100115
  Serious: Yes (Death, Hospitalization)
  Sender: FDA-Public Use
  Company Number: US-GILEAD-2009-0023261

PATIENT
  Sex: Female
  Weight: 72.186 kg

DRUGS (18)
  1. LETAIRIS [Suspect]
     Indication: PULMONARY ARTERIAL HYPERTENSION
     Route: 048
     Dates: start: 20080325
  2. REVATIO [Concomitant]
  3. DIGOXIN [Concomitant]
  4. DEMADEX [Concomitant]
  5. COUMADIN [Concomitant]
  6. SPIRONOLACTONE [Concomitant]
  7. COMBIVENT [Concomitant]
  8. IPRATROPIUM BR [Concomitant]
  9. ALBUTEROL [Concomitant]
  10. SYMBICORT [Concomitant]
  11. OXYGEN [Concomitant]
  12. GLIPIZIDE [Concomitant]
  13. AMBIEN [Concomitant]
  14. CLORAZEPATE DIPOTASSIUM [Concomitant]
  15. ZOLOFT [Concomitant]
  16. GLUCOSAMINE [Concomitant]
  17. CALCIUM [Concomitant]
  18. MAGNESIUM [Concomitant]

REACTIONS (1)
  - DEATH [None]
